FAERS Safety Report 10512431 (Version 1)
Quarter: 2014Q4

REPORT INFORMATION
  Report Type: Report from Study
  Country: BR (occurrence: BR)
  Receive Date: 20141010
  Receipt Date: 20141010
  Transmission Date: 20150528
  Serious: Yes (Other)
  Sender: FDA-Public Use
  Company Number: PHHY2014BR132617

PATIENT
  Age: 76 Year
  Sex: Female
  Weight: 80 kg

DRUGS (6)
  1. VITAMIN D3 [Concomitant]
     Active Substance: CHOLECALCIFEROL
     Dosage: 35 DRP, DAILY
     Dates: start: 2014
  2. TOFRANIL [Concomitant]
     Active Substance: IMIPRAMINE HYDROCHLORIDE
     Indication: DEPRESSION
     Dosage: 2 DF, DAILY
     Dates: start: 201409
  3. ACLASTA [Suspect]
     Active Substance: ZOLEDRONIC ACID
     Indication: OSTEOPOROSIS
     Dosage: 1 DF, A YEAR
     Route: 042
     Dates: start: 2011, end: 2012
  4. ACLASTA [Suspect]
     Active Substance: ZOLEDRONIC ACID
     Indication: OSTEOPENIA
     Dosage: 1 DF, A YEAR
     Route: 042
     Dates: start: 2014
  5. MONASCUS PURPUREUS [Concomitant]
     Active Substance: RED YEAST
     Indication: BLOOD CHOLESTEROL INCREASED
     Dosage: 1 DF, DAILY
     Dates: start: 201409
  6. SIFROL [Concomitant]
     Active Substance: PRAMIPEXOLE
     Indication: RESTLESS LEGS SYNDROME
     Dosage: 2 DF, DAILY

REACTIONS (6)
  - Meniscus injury [Recovering/Resolving]
  - Fall [Recovering/Resolving]
  - Lower limb fracture [Recovering/Resolving]
  - Pelvic fracture [Recovering/Resolving]
  - Femur fracture [Recovering/Resolving]
  - Inflammation [Recovering/Resolving]

NARRATIVE: CASE EVENT DATE: 2011
